FAERS Safety Report 4865457-0 (Version None)
Quarter: 2005Q4

REPORT INFORMATION
  Report Type: 
  Country: None (occurrence: None)
  Receive Date: 20051220
  Receipt Date: 20051213
  Transmission Date: 20060501
  Serious: Yes (Death)
  Sender: FDA-Public Use
  Company Number: 200512955BWH

PATIENT
  Sex: Female

DRUGS (1)
  1. TRASYLOL [Suspect]
     Indication: HEART VALVE REPLACEMENT
     Dates: start: 20050722

REACTIONS (2)
  - CARDIAC VALVE REPLACEMENT COMPLICATION [None]
  - PROCEDURAL COMPLICATION [None]
